FAERS Safety Report 4314699-1 (Version None)
Quarter: 2004Q1

REPORT INFORMATION
  Report Type: 
  Country: None (occurrence: None)
  Receive Date: 20040310
  Receipt Date: 20040122
  Transmission Date: 20041129
  Serious: Yes (Other)
  Sender: FDA-Public Use
  Company Number: PHNR2004AU00503

PATIENT
  Age: 20 Year
  Sex: Female

DRUGS (3)
  1. CLOZARIL [Suspect]
     Indication: SCHIZOPHRENIA
     Dosage: 12.5 - 600 MG/DAY
     Dates: start: 20030828, end: 20040201
  2. CLOZARIL [Suspect]
     Dosage: 500 MG/DAY
     Dates: start: 20040201
  3. AMISULPRIDE [Concomitant]
     Dosage: 400 MG/DAY
     Dates: end: 20040101

REACTIONS (5)
  - ASTHENIA [None]
  - CATAPLEXY [None]
  - CIRCULATORY COLLAPSE [None]
  - ELECTROENCEPHALOGRAM ABNORMAL [None]
  - HYPOTONIA [None]
